FAERS Safety Report 18391147 (Version 3)
Quarter: 2020Q4

REPORT INFORMATION
  Report Type: Spontaneous
  Country: EG (occurrence: EG)
  Receive Date: 20201015
  Receipt Date: 20201119
  Transmission Date: 20210114
  Serious: Yes (Other)
  Sender: FDA-Public Use
  Company Number: EG-NOVOPROD-759111

PATIENT
  Age: 62 Year
  Weight: 80 kg

DRUGS (1)
  1. MIXTARD 30 [Suspect]
     Active Substance: INSULIN HUMAN
     Indication: PRODUCT USED FOR UNKNOWN INDICATION
     Dosage: 60 IU, QD (FOR 10 YEARS)
     Route: 058

REACTIONS (1)
  - Glycosylated haemoglobin increased [Recovered/Resolved]
